FAERS Safety Report 9193491 (Version 2)
Quarter: 2013Q2

REPORT INFORMATION
  Report Type: Spontaneous
  Country: GB (occurrence: GB)
  Receive Date: 20130327
  Receipt Date: 20130418
  Transmission Date: 20140414
  Serious: Yes (Other)
  Sender: FDA-Public Use
  Company Number: GB-ROCHE-1206901

PATIENT
  Age: 69 Year
  Sex: Female

DRUGS (6)
  1. ZELBORAF [Suspect]
     Indication: METASTATIC MALIGNANT MELANOMA
     Dosage: AT MORNING- 240 MG, AT  EVENING- 480 MG
     Route: 048
     Dates: start: 20121120
  2. DIGOXIN-SPECIFIC ANTIBODY FRAGMENTS [Interacting]
     Indication: ATRIAL FIBRILLATION
     Route: 048
  3. DIGOXIN-SPECIFIC ANTIBODY FRAGMENTS [Interacting]
     Route: 048
  4. ASPIRIN [Concomitant]
     Indication: ATRIAL FIBRILLATION
     Route: 048
  5. ATORVASTATIN [Concomitant]
     Indication: BLOOD CHOLESTEROL INCREASED
     Route: 048
  6. METOPROLOL AL [Concomitant]
     Indication: ATRIAL FIBRILLATION
     Route: 048

REACTIONS (3)
  - Arrhythmia [Unknown]
  - Cardioactive drug level increased [Recovering/Resolving]
  - Drug interaction [Unknown]
